FAERS Safety Report 7565770-2 (Version None)
Quarter: 2011Q2

REPORT INFORMATION
  Report Type: 
  Country: None (occurrence: None)
  Receive Date: 20110623
  Receipt Date: 20110616
  Transmission Date: 20111010
  Serious: Yes (Hospitalization, Other)
  Sender: FDA-Public Use
  Company Number: US-PFIZER INC-2011023022

PATIENT
  Sex: Male

DRUGS (6)
  1. TRAZODONE [Concomitant]
     Indication: ANXIETY
  2. CHANTIX [Suspect]
     Indication: SMOKING CESSATION THERAPY
     Dosage: 0.5 MG AND 1.0 MG
     Dates: start: 20090114, end: 20090501
  3. TRAZODONE [Concomitant]
  4. CITALOPRAM [Concomitant]
     Indication: DEPRESSION
     Dosage: UNK
  5. METOPROLOL [Concomitant]
     Indication: HYPERTENSION
     Dosage: UNK
  6. TRAZODONE [Concomitant]
     Indication: DEPRESSION
     Dosage: UNK
     Dates: start: 20050101, end: 20100101

REACTIONS (4)
  - AGGRESSION [None]
  - ANXIETY [None]
  - DEPRESSION [None]
  - SLEEP TERROR [None]
